FAERS Safety Report 8606019-9 (Version None)
Quarter: 2012Q3

REPORT INFORMATION
  Report Type: 
  Country: None (occurrence: None)
  Receive Date: 20120820
  Receipt Date: 20120810
  Transmission Date: 20120928
  Serious: Yes (Other)
  Sender: FDA-Public Use
  Company Number: US-ASTRAZENECA-2011SE77003

PATIENT
  Age: 62 Year
  Sex: Female

DRUGS (6)
  1. STEROIDS [Suspect]
     Route: 065
  2. FLUTICASONE PROPIONATE [Suspect]
     Indication: ASTHMA
     Route: 065
  3. TOPROL-XL [Suspect]
     Route: 048
  4. CRESTOR [Suspect]
     Route: 048
  5. LASIX [Concomitant]
  6. OMEPRAZOLE [Concomitant]
     Route: 048

REACTIONS (4)
  - CARDIAC DISORDER [None]
  - STRESS [None]
  - CHEST PAIN [None]
  - MYOCARDIAL INFARCTION [None]
